FAERS Safety Report 6204052-8 (Version None)
Quarter: 2009Q2

REPORT INFORMATION
  Report Type: 
  Country: None (occurrence: None)
  Receive Date: 20090526
  Receipt Date: 20090526
  Transmission Date: 20091009
  Serious: No
  Sender: FDA-Public Use
  Company Number: None

PATIENT
  Age: 57 Year
  Sex: Female
  Weight: 57.6068 kg

DRUGS (1)
  1. NAPROSYN [Suspect]
     Indication: NEURALGIA
     Dosage: 2700MG
     Dates: start: 20081121, end: 20090103

REACTIONS (5)
  - ALOPECIA [None]
  - DRUG INEFFECTIVE [None]
  - THINKING ABNORMAL [None]
  - THYROID DISORDER [None]
  - TINNITUS [None]
